FAERS Safety Report 12219762 (Version 1)
Quarter: 2016Q1

REPORT INFORMATION
  Report Type: Report from Study
  Country: US (occurrence: US)
  Receive Date: 20160330
  Receipt Date: 20160330
  Transmission Date: 20160526
  Serious: Yes (Other)
  Sender: FDA-Public Use
  Company Number: PHEH2015US004997

PATIENT
  Age: 68 Year
  Sex: Female
  Weight: 89 kg

DRUGS (7)
  1. CIPRO [Concomitant]
     Active Substance: CIPROFLOXACIN HYDROCHLORIDE
     Indication: PRODUCT USED FOR UNKNOWN INDICATION
     Dosage: 1 DF, QD (EACH 24 HR) X 7 DAYS
     Route: 065
     Dates: start: 20150420
  2. DOCUSATE PLUS SENNA [Concomitant]
     Active Substance: DOCUSATE SODIUM\SENNOSIDES A AND B
     Indication: PRODUCT USED FOR UNKNOWN INDICATION
     Dosage: 2 DF, AT NIGHT
     Route: 048
     Dates: start: 20150320
  3. NOVOLOG [Concomitant]
     Active Substance: INSULIN ASPART
     Indication: PRODUCT USED FOR UNKNOWN INDICATION
     Dosage: 15 U, TID, UNDER THE SKIN (BEFOR MEALS)
     Route: 058
     Dates: start: 20121107
  4. DILAUDID [Concomitant]
     Active Substance: HYDROMORPHONE HYDROCHLORIDE
     Indication: PAIN
     Dosage: 1 DF, BY MOUTH EVERY 4 HR AS NEEDED
     Route: 048
     Dates: start: 20150317
  5. AFINITOR [Suspect]
     Active Substance: EVEROLIMUS
     Indication: RENAL CELL CARCINOMA
     Dosage: 10 MG, QD
     Route: 048
     Dates: start: 201501, end: 201502
  6. ZOCOR [Concomitant]
     Active Substance: SIMVASTATIN
     Indication: PRODUCT USED FOR UNKNOWN INDICATION
     Dosage: 1 DF, BY MOUTH, NIGHTLY
     Route: 048
     Dates: start: 20120828
  7. PHENERGAN//PROMETHAZINE [Concomitant]
     Indication: NAUSEA
     Dosage: 1 DF, BY MOUTH, EVERY 6 HR AS NEEDED
     Route: 048
     Dates: start: 20141216

REACTIONS (2)
  - Chronic kidney disease [Unknown]
  - Acute kidney injury [Not Recovered/Not Resolved]

NARRATIVE: CASE EVENT DATE: 201502
